FAERS Safety Report 25594362 (Version 1)
Quarter: 2025Q3

REPORT INFORMATION
  Report Type: Spontaneous
  Country: US (occurrence: None)
  Receive Date: 20250723
  Receipt Date: 20250723
  Transmission Date: 20251020
  Serious: No
  Sender: Rayner
  Company Number: US-ARIS GLOBAL-RPH202503-000004

PATIENT
  Age: 88 Year
  Sex: Female

DRUGS (3)
  1. OMIDRIA [Suspect]
     Active Substance: KETOROLAC\PHENYLEPHRINE
     Indication: Cataract operation
  2. VIGAMOX [Concomitant]
     Active Substance: MOXIFLOXACIN HYDROCHLORIDE
  3. Moxi [Concomitant]

REACTIONS (1)
  - Corneal oedema [Unknown]
